FAERS Safety Report 15760101 (Version 4)
Quarter: 2019Q1

REPORT INFORMATION
  Report Type: Report from Study
  Country: CA (occurrence: CA)
  Receive Date: 20181226
  Receipt Date: 20190329
  Transmission Date: 20190417
  Serious: Yes (Death, Other)
  Sender: FDA-Public Use
  Company Number: PHHY2017CA098568

PATIENT
  Age: 69 Year
  Sex: Female

DRUGS (2)
  1. SANDOSTATIN LAR DEPOT [Suspect]
     Active Substance: OCTREOTIDE ACETATE
     Indication: NEUROENDOCRINE TUMOUR
     Dosage: 20 MG, QMO (ONCE A MONTH)
     Route: 030
     Dates: start: 20170308, end: 20180530
  2. SANDOSTATIN LAR DEPOT [Suspect]
     Active Substance: OCTREOTIDE ACETATE
     Indication: CARCINOID TUMOUR
     Dosage: 30 MG, QMO (EVERY 4 WEEKS)
     Route: 030

REACTIONS (16)
  - Peripheral swelling [Unknown]
  - Haemoglobin decreased [Unknown]
  - Gait disturbance [Unknown]
  - Death [Fatal]
  - Asthenia [Unknown]
  - Malignant neoplasm progression [Unknown]
  - Heart rate increased [Unknown]
  - Blood pressure fluctuation [Unknown]
  - Nausea [Unknown]
  - Thrombosis [Unknown]
  - Blood pressure increased [Unknown]
  - Diarrhoea [Recovering/Resolving]
  - Haematochezia [Not Recovered/Not Resolved]
  - Carcinoid tumour [Unknown]
  - Malaise [Unknown]
  - Back injury [Unknown]

NARRATIVE: CASE EVENT DATE: 20170629
